FAERS Safety Report 4746933-8 (Version None)
Quarter: 2005Q3

REPORT INFORMATION
  Report Type: 
  Country: None (occurrence: None)
  Receive Date: 20050815
  Receipt Date: 20050728
  Transmission Date: 20060218
  Serious: Yes (Disabling, Other)
  Sender: FDA-Public Use
  Company Number: USA021123970

PATIENT
  Age: 63 Year
  Sex: Female

DRUGS (5)
  1. HUMULIN N [Suspect]
     Indication: DIABETES MELLITUS
     Dates: start: 19900101
  2. HUMULIN R [Suspect]
     Indication: DIABETES MELLITUS
     Dosage: 25 U/DAY
     Dates: start: 19900101, end: 20021101
  3. HUMULIN L [Suspect]
     Indication: DIABETES MELLITUS
     Dosage: 12 U/1 IN THE EVENING
     Dates: start: 19900101, end: 20021101
  4. HUMALOG [Suspect]
     Indication: DIABETES MELLITUS
  5. LANTUS [Concomitant]

REACTIONS (5)
  - BLINDNESS [None]
  - BLOOD GLUCOSE INCREASED [None]
  - OCULAR VASCULAR DISORDER [None]
  - PHARMACEUTICAL PRODUCT COMPLAINT [None]
  - RETINAL HAEMORRHAGE [None]
